FAERS Safety Report 5928319-3 (Version None)
Quarter: 2008Q4

REPORT INFORMATION
  Report Type: 
  Country: None (occurrence: None)
  Receive Date: 20081020
  Receipt Date: 20080625
  Transmission Date: 20090506
  Serious: Yes (Hospitalization)
  Sender: FDA-Public Use
  Company Number: CL000392008

PATIENT
  Age: 63 Year
  Sex: Female

DRUGS (13)
  1. CIPROFLOXACIN [Suspect]
  2. AMILORIDE HYDROCHLORIDE [Concomitant]
  3. BUMETANIDE [Concomitant]
  4. CARBOCYSTEINE [Concomitant]
  5. LEVOTHYROXINE SODIUM [Concomitant]
  6. MORPHINE [Concomitant]
  7. SALBUTAMOL [Concomitant]
  8. SERETIDE [Concomitant]
  9. SIMVASTATIN [Concomitant]
  10. TIOTROPIUM BROMIDE [Concomitant]
  11. TRAMADOL HYDROCHLORIDE [Concomitant]
  12. VERAPAMIL [Concomitant]
  13. WARFARIN SODIUM [Concomitant]

REACTIONS (3)
  - LIP SWELLING [None]
  - RASH [None]
  - ULCER [None]
